FAERS Safety Report 25488387 (Version 3)
Quarter: 2025Q3

REPORT INFORMATION
  Report Type: Spontaneous
  Country: RU (occurrence: RU)
  Receive Date: 20250627
  Receipt Date: 20250813
  Transmission Date: 20251020
  Serious: Yes (Hospitalization)
  Sender: IPSEN BIOPHARMACEUTICALS, INC.
  Company Number: RU-IPSEN Group, Research and Development-2025-14330

PATIENT
  Age: 10 Year
  Sex: Female

DRUGS (4)
  1. SOHONOS [Suspect]
     Active Substance: PALOVAROTENE
     Indication: Fibrodysplasia ossificans progressiva
     Dates: start: 20250608
  2. SOHONOS [Suspect]
     Active Substance: PALOVAROTENE
     Dates: start: 20250601
  3. SOHONOS [Suspect]
     Active Substance: PALOVAROTENE
     Dates: start: 20250630
  4. SOHONOS [Suspect]
     Active Substance: PALOVAROTENE
     Dates: start: 20250716

REACTIONS (12)
  - Condition aggravated [Unknown]
  - Condition aggravated [Unknown]
  - Skin exfoliation [Unknown]
  - Dry skin [Recovering/Resolving]
  - Pruritus [Unknown]
  - Rash [Unknown]
  - Dry eye [Recovering/Resolving]
  - Lip dry [Recovering/Resolving]
  - Flushing [Unknown]
  - Pruritus [Unknown]
  - Arthralgia [Unknown]
  - Injury [Unknown]

NARRATIVE: CASE EVENT DATE: 20250606
